FAERS Safety Report 5084580-1 (Version None)
Quarter: 2006Q3

REPORT INFORMATION
  Report Type: 
  Country: None (occurrence: None)
  Receive Date: 20060818
  Receipt Date: 20060818
  Transmission Date: 20061208
  Serious: No
  Sender: FDA-Public Use
  Company Number: None

PATIENT
  Age: 24 Year
  Sex: Female

DRUGS (1)
  1. PPD [Suspect]

REACTIONS (4)
  - ARTHRALGIA [None]
  - MYALGIA [None]
  - RASH PRURITIC [None]
  - URTICARIA [None]
